FAERS Safety Report 4742729-1 (Version None)
Quarter: 2005Q3

REPORT INFORMATION
  Report Type: 
  Country: None (occurrence: None)
  Receive Date: 20050811
  Receipt Date: 20031001
  Transmission Date: 20060218
  Serious: Yes (Death)
  Sender: FDA-Public Use
  Company Number: US-MERCK-0310USA00151

PATIENT

DRUGS (20)
  1. COZAAR [Suspect]
     Route: 065
  2. DECADRON [Suspect]
     Route: 065
  3. BENADRYL [Suspect]
     Route: 065
  4. ZITHROMAX [Suspect]
     Route: 065
  5. ZOLOFT [Suspect]
     Route: 065
  6. VISTARIL [Suspect]
     Route: 065
  7. ACCOLATE [Suspect]
     Route: 065
  8. LEVOXYL [Suspect]
     Route: 065
  9. AMBIEN [Suspect]
     Route: 065
  10. ADVAIR DISKUS 100/50 [Suspect]
     Route: 065
  11. COLACE [Suspect]
     Route: 065
  12. COUMADIN [Suspect]
     Route: 065
  13. GLYBURIDE [Suspect]
     Route: 065
  14. ALDACTONE [Suspect]
     Route: 065
  15. AMIODARONE MSD [Suspect]
     Route: 065
  16. NYSTATIN [Suspect]
     Route: 065
  17. ASPIRIN [Suspect]
     Route: 065
  18. LASIX [Suspect]
     Route: 065
  19. LORAZEPAM [Suspect]
     Route: 065
  20. TUSSIONEX [Suspect]
     Route: 065

REACTIONS (3)
  - DEATH [None]
  - DRUG INTERACTION [None]
  - HYPERSENSITIVITY [None]
